FAERS Safety Report 23462741 (Version 1)
Quarter: 2024Q1

REPORT INFORMATION
  Report Type: Spontaneous
  Country: US (occurrence: US)
  Receive Date: 20240131
  Receipt Date: 20240131
  Transmission Date: 20240410
  Serious: No
  Sender: FDA-Public Use
  Company Number: US-KOWA PHARMACEUTICALS-2023KOW00045

PATIENT
  Age: 46 Year
  Sex: Female
  Weight: 54.422 kg

DRUGS (3)
  1. SEGLENTIS [Suspect]
     Active Substance: CELECOXIB\TRAMADOL HYDROCHLORIDE
     Indication: Pain
     Dosage: 1 TABLETS
     Dates: start: 20230814
  2. FEZOLINETANT [Suspect]
     Active Substance: FEZOLINETANT
     Dosage: UNK
     Dates: start: 202306
  3. IRON [Suspect]
     Active Substance: IRON

REACTIONS (1)
  - Nausea [Unknown]

NARRATIVE: CASE EVENT DATE: 20230814
